FAERS Safety Report 23930054 (Version 1)
Quarter: 2024Q2

REPORT INFORMATION
  Report Type: Spontaneous
  Country: US (occurrence: US)
  Receive Date: 20240601
  Receipt Date: 20240601
  Transmission Date: 20240716
  Serious: Yes (Other)
  Sender: FDA-Public Use
  Company Number: US-AMGEN-USASP2024103307

PATIENT
  Age: 72 Year
  Sex: Male

DRUGS (1)
  1. BEVACIZUMAB [Suspect]
     Active Substance: BEVACIZUMAB
     Indication: Subretinal fluid
     Dosage: UNK
     Route: 065

REACTIONS (5)
  - Subretinal fluid [Recovered/Resolved]
  - Choroidal neovascularisation [Recovered/Resolved]
  - Detachment of retinal pigment epithelium [Unknown]
  - Drug effective for unapproved indication [Unknown]
  - Off label use [Unknown]
